FAERS Safety Report 5006076-5 (Version None)
Quarter: 2006Q2

REPORT INFORMATION
  Report Type: 
  Country: None (occurrence: None)
  Receive Date: 20060518
  Receipt Date: 20060120
  Transmission Date: 20061013
  Serious: Yes (Hospitalization)
  Sender: FDA-Public Use
  Company Number: CA-MERCK-0601CAN00145

PATIENT
  Age: 77 Year
  Sex: Female

DRUGS (3)
  1. ALENDRONATE SODIUM [Suspect]
     Route: 048
     Dates: start: 20020101, end: 20060104
  2. ALENDRONATE SODIUM [Suspect]
     Route: 048
     Dates: start: 19950101, end: 20020101
  3. [THERAPY UNSPECIFIED] [Concomitant]
     Indication: INFLAMMATION
     Route: 065

REACTIONS (8)
  - CROHN'S DISEASE [None]
  - DRUG DOSE OMISSION [None]
  - GASTROINTESTINAL DISORDER [None]
  - INAPPROPRIATE SCHEDULE OF DRUG ADMINISTRATION [None]
  - LARGE INTESTINAL ULCER [None]
  - PAIN IN EXTREMITY [None]
  - RECTAL NEOPLASM [None]
  - SHOULDER PAIN [None]
